FAERS Safety Report 9452671 (Version 2)
Quarter: 2013Q3

REPORT INFORMATION
  Report Type: Spontaneous
  Country: US (occurrence: US)
  Receive Date: 20130812
  Receipt Date: 20130905
  Transmission Date: 20140515
  Serious: Yes (Other)
  Sender: FDA-Public Use
  Company Number: US-BAYER-2013-096773

PATIENT
  Age: 38 Year
  Sex: Female
  Weight: 64.85 kg

DRUGS (3)
  1. MIRENA [Suspect]
     Indication: CONTRACEPTION
     Dosage: 20 MCG/24HR, CONT
     Route: 015
     Dates: start: 20130620, end: 20130724
  2. SPIRONOLACTONE [Concomitant]
     Dosage: 25 MG, QD
  3. MONODOX [Concomitant]
     Dosage: 75 MG, UNK

REACTIONS (3)
  - Genital haemorrhage [None]
  - Abdominal pain lower [None]
  - Device expulsion [None]
